FAERS Safety Report 15015620 (Version 1)
Quarter: 2018Q2

REPORT INFORMATION
  Report Type: Spontaneous
  Country: US (occurrence: US)
  Receive Date: 20180530
  Receipt Date: 20180530
  Transmission Date: 20180711
  Serious: Yes (Disabling)
  Sender: FDA-Public Use
  Company Number: None

PATIENT
  Age: 44 Year
  Sex: Female
  Weight: 54 kg

DRUGS (24)
  1. CIPROFLOXACIN 500 MG TABLETS [Suspect]
     Active Substance: CIPROFLOXACIN
     Indication: URINARY TRACT INFECTION
     Dosage: ?          QUANTITY:1 TABLET(S);?
     Route: 048
     Dates: start: 20171207, end: 20171209
  2. PYRROQUINOLINE QUINONE [Concomitant]
  3. TURMERIC [Concomitant]
     Active Substance: HERBALS\TURMERIC
  4. EPA-DHA [Concomitant]
  5. L-THEANINE [Concomitant]
     Active Substance: DIETARY SUPPLEMENT
  6. IDEBENONE [Concomitant]
     Active Substance: IDEBENONE
  7. NP THYROID [Concomitant]
     Active Substance: LEVOTHYROXINE\LIOTHYRONINE
  8. ACETYL-L-CARNITINE [Concomitant]
  9. BENFOTIAMINE [Concomitant]
     Active Substance: BENFOTIAMINE
  10. ULTRA PREVENTIVE III MULTI VITAMIN [Concomitant]
  11. TRAZODONE [Concomitant]
     Active Substance: TRAZODONE HYDROCHLORIDE
  12. DIMENTION 3 [Concomitant]
  13. ALPHA LIPOIC ACID [Concomitant]
     Active Substance: .ALPHA.-LIPOIC ACID
  14. REMAG MAGNESIUM [Concomitant]
  15. GABAPENTIN. [Concomitant]
     Active Substance: GABAPENTIN
  16. MELATONIN [Concomitant]
     Active Substance: MELATONIN
  17. IRON GLYCINATE [Concomitant]
     Active Substance: FERROUS BISGLYCINATE
  18. CALM PRT [Concomitant]
  19. VITAMIN C [Concomitant]
     Active Substance: ASCORBIC ACID
  20. TRINTELLIX [Concomitant]
     Active Substance: VORTIOXETINE HYDROBROMIDE
  21. DIFLUCAN [Concomitant]
     Active Substance: FLUCONAZOLE
  22. METHYL B-12 [Concomitant]
  23. D3-5 [Concomitant]
  24. N-ACETYL-I-CYSTEINE [Concomitant]

REACTIONS (23)
  - Palpitations [None]
  - Skin disorder [None]
  - Acne [None]
  - Muscle twitching [None]
  - Weight decreased [None]
  - Panic attack [None]
  - Suicidal ideation [None]
  - Insomnia [None]
  - Fear [None]
  - Muscle spasms [None]
  - Anxiety [None]
  - Pain [None]
  - Thyroid disorder [None]
  - Tinnitus [None]
  - Arthralgia [None]
  - Depressed mood [None]
  - Tremor [None]
  - Impaired work ability [None]
  - Gait disturbance [None]
  - Tachycardia [None]
  - Depression [None]
  - Feeling abnormal [None]
  - Amnesia [None]
